FAERS Safety Report 8069642-9 (Version None)
Quarter: 2012Q1

REPORT INFORMATION
  Report Type: 
  Country: None (occurrence: None)
  Receive Date: 20120125
  Receipt Date: 20120118
  Transmission Date: 20120608
  Serious: Yes (Other)
  Sender: FDA-Public Use
  Company Number: IT-JNJFOC-20120107962

PATIENT
  Age: 7 Year
  Sex: Male

DRUGS (1)
  1. REMICADE [Suspect]
     Indication: PRODUCT USED FOR UNKNOWN INDICATION
     Route: 042
     Dates: start: 20111205, end: 20111205

REACTIONS (6)
  - OXYGEN SATURATION DECREASED [None]
  - BRONCHIAL OBSTRUCTION [None]
  - HEADACHE [None]
  - FLUSHING [None]
  - ERYTHEMA [None]
  - COUGH [None]
